FAERS Safety Report 24778332 (Version 1)
Quarter: 2024Q4

REPORT INFORMATION
  Report Type: Spontaneous
  Country: US (occurrence: US)
  Receive Date: 20241226
  Receipt Date: 20241226
  Transmission Date: 20250115
  Serious: No
  Sender: BAYER HEALTHCARE LLC
  Company Number: US-BAYER-2024A182441

PATIENT

DRUGS (1)
  1. ASTEPRO [Suspect]
     Active Substance: AZELASTINE HYDROCHLORIDE
     Indication: Product used for unknown indication
     Route: 065

REACTIONS (1)
  - Lacrimation increased [Unknown]
